FAERS Safety Report 20699615 (Version 3)
Quarter: 2022Q2

REPORT INFORMATION
  Report Type: Spontaneous
  Country: JP (occurrence: JP)
  Receive Date: 20220412
  Receipt Date: 20220610
  Transmission Date: 20220721
  Serious: Yes (Hospitalization, Other)
  Sender: FDA-Public Use
  Company Number: JP-GLAXOSMITHKLINE-JP2022JPN061382

PATIENT

DRUGS (13)
  1. SOTROVIMAB [Suspect]
     Active Substance: SOTROVIMAB
     Indication: Coronavirus test positive
     Dosage: 500 MG, QD
     Route: 042
     Dates: start: 20220407, end: 20220407
  2. SOTROVIMAB [Suspect]
     Active Substance: SOTROVIMAB
     Indication: Cough
  3. SOTROVIMAB [Suspect]
     Active Substance: SOTROVIMAB
     Indication: Productive cough
  4. SOTROVIMAB [Suspect]
     Active Substance: SOTROVIMAB
     Indication: Oropharyngeal pain
  5. SOTROVIMAB [Suspect]
     Active Substance: SOTROVIMAB
     Indication: Pyrexia
  6. SOTROVIMAB [Suspect]
     Active Substance: SOTROVIMAB
     Indication: COVID-19
  7. SERETIDE [Concomitant]
     Active Substance: FLUTICASONE PROPIONATE\SALMETEROL XINAFOATE
     Dosage: UNK
  8. PREDONINE [Concomitant]
     Active Substance: PREDNISOLONE
     Dosage: UNK
  9. MONTELUKAST [Concomitant]
     Active Substance: MONTELUKAST SODIUM
     Dosage: UNK
  10. CLARITHROMYCIN [Concomitant]
     Active Substance: CLARITHROMYCIN
     Dosage: UNK
  11. EPINASTINE HYDROCHLORIDE TABLET [Concomitant]
     Dosage: UNK
  12. OMEPRAZOLE [Concomitant]
     Active Substance: OMEPRAZOLE
     Dosage: UNK
  13. SPIRIVA RESPIMAT [Concomitant]
     Active Substance: TIOTROPIUM BROMIDE
     Dosage: UNK

REACTIONS (3)
  - Anaphylactic reaction [Recovered/Resolved]
  - Pruritus [Recovered/Resolved]
  - Wheezing [Recovered/Resolved]

NARRATIVE: CASE EVENT DATE: 20220407
